FAERS Safety Report 10436032 (Version 1)
Quarter: 2014Q3

REPORT INFORMATION
  Report Type: Spontaneous
  Country: US (occurrence: None)
  Receive Date: 20140905
  Receipt Date: 20140905
  Transmission Date: 20150326
  Serious: Yes (Hospitalization)
  Sender: FDA-Public Use
  Company Number: None

PATIENT
  Age: 1 Month
  Sex: Female
  Weight: 5.1 kg

DRUGS (1)
  1. CYMBALTA [Suspect]
     Active Substance: DULOXETINE HYDROCHLORIDE
     Indication: ANXIETY
     Dosage: 1 QD ORAL
     Route: 048
     Dates: start: 20140808, end: 20140816

REACTIONS (3)
  - Unresponsive to stimuli [None]
  - Exposure during breast feeding [None]
  - Hypotonia [None]

NARRATIVE: CASE EVENT DATE: 20140816
